FAERS Safety Report 15311301 (Version 1)
Quarter: 2018Q3

REPORT INFORMATION
  Report Type: Spontaneous
  Country: AF (occurrence: AF)
  Receive Date: 20180814
  Receipt Date: 20180814
  Transmission Date: 20181010
  Serious: Yes (Life-Threatening, Hospitalization, Disabling)
  Sender: FDA-Public Use
  Company Number: None

PATIENT
  Age: 62 Year
  Sex: Female
  Weight: 83.25 kg

DRUGS (12)
  1. WELLBUTRIN [Concomitant]
     Active Substance: BUPROPION HYDROCHLORIDE
  2. ASPIRIN. [Concomitant]
     Active Substance: ASPIRIN
  3. CORTICOSTEROID NOS [Suspect]
     Active Substance: CORTICOSTEROID NOS
     Indication: BACK PAIN
     Route: 008
     Dates: start: 20180615, end: 20180615
  4. HCTZ [Concomitant]
     Active Substance: HYDROCHLOROTHIAZIDE
  5. NORVASC [Concomitant]
     Active Substance: AMLODIPINE BESYLATE
  6. ACCUPRIL [Concomitant]
     Active Substance: QUINAPRIL HYDROCHLORIDE
  7. MULTIVITAMIN [Concomitant]
     Active Substance: VITAMINS
  8. ALPRAZOLAM. [Concomitant]
     Active Substance: ALPRAZOLAM
  9. PRILOSEC [Concomitant]
     Active Substance: OMEPRAZOLE MAGNESIUM
  10. AMBIEN [Concomitant]
     Active Substance: ZOLPIDEM TARTRATE
  11. ALEVE [Concomitant]
     Active Substance: NAPROXEN SODIUM
  12. LEXAPRO [Concomitant]
     Active Substance: ESCITALOPRAM OXALATE

REACTIONS (14)
  - Dysarthria [None]
  - Malaise [None]
  - Product use in unapproved indication [None]
  - Neck pain [None]
  - Meningitis viral [None]
  - Headache [None]
  - Initial insomnia [None]
  - Thinking abnormal [None]
  - Impaired driving ability [None]
  - Fatigue [None]
  - Vomiting [None]
  - Herpes zoster [None]
  - Osteoarthritis [None]
  - Vision blurred [None]

NARRATIVE: CASE EVENT DATE: 20180615
